FAERS Safety Report 9448497 (Version 1)
Quarter: 2013Q3

REPORT INFORMATION
  Report Type: Spontaneous
  Country: BR (occurrence: BR)
  Receive Date: 20130808
  Receipt Date: 20130808
  Transmission Date: 20140515
  Serious: Yes (Death, Other)
  Sender: FDA-Public Use
  Company Number: BR-JNJFOC-20130718289

PATIENT
  Age: 34 Year
  Sex: Male

DRUGS (4)
  1. INVEGA SUSTENNA [Suspect]
     Indication: PRODUCT USED FOR UNKNOWN INDICATION
     Route: 030
     Dates: start: 20130624
  2. INVEGA SUSTENNA [Suspect]
     Indication: PRODUCT USED FOR UNKNOWN INDICATION
     Route: 030
     Dates: start: 20130616
  3. AMITRIPTYLINE [Concomitant]
     Dosage: EVERY NIGHT
     Route: 065
  4. FLUOXETINE [Concomitant]
     Route: 065

REACTIONS (5)
  - Cardiac arrest [Fatal]
  - Pulmonary embolism [Fatal]
  - Adenoidectomy [Recovered/Resolved]
  - Back pain [Unknown]
  - Haemorrhage [Unknown]
